FAERS Safety Report 7780040-5 (Version None)
Quarter: 2011Q3

REPORT INFORMATION
  Report Type: 
  Country: None (occurrence: None)
  Receive Date: 20110927
  Receipt Date: 20110412
  Transmission Date: 20111222
  Serious: No
  Sender: FDA-Public Use
  Company Number: US-ASTRAZENECA-2011SE21238

PATIENT
  Age: 44 Year
  Sex: Female
  Weight: 70.3 kg

DRUGS (8)
  1. SOMA [Concomitant]
  2. LYRICA [Concomitant]
  3. ZOLOFT [Concomitant]
  4. CLONAZEPAM [Concomitant]
  5. CARAFATE [Concomitant]
  6. PRILOSEC [Concomitant]
  7. SEROQUEL [Suspect]
     Indication: BIPOLAR DISORDER
     Route: 048
     Dates: start: 20070101
  8. OXYCODONE [Concomitant]

REACTIONS (5)
  - GASTROOESOPHAGEAL REFLUX DISEASE [None]
  - INCORRECT DOSE ADMINISTERED [None]
  - CRYING [None]
  - DEPRESSION [None]
  - WEIGHT INCREASED [None]
